FAERS Safety Report 9688420 (Version 1)
Quarter: 2013Q4

REPORT INFORMATION
  Report Type: Spontaneous
  Country: US (occurrence: None)
  Receive Date: 20131112
  Receipt Date: 20131112
  Transmission Date: 20140711
  Serious: Yes (Hospitalization, Other)
  Sender: FDA-Public Use
  Company Number: IPC201310-000440

PATIENT
  Age: 3 Year
  Sex: Male

DRUGS (1)
  1. TRAMADOL [Suspect]

REACTIONS (12)
  - Toxicity to various agents [None]
  - Overdose [None]
  - Mental status changes [None]
  - Dyspnoea [None]
  - Ataxia [None]
  - Vomiting [None]
  - Protrusion tongue [None]
  - Mobility decreased [None]
  - Unresponsive to stimuli [None]
  - Accidental exposure to product by child [None]
  - Drug screen false positive [None]
  - Depressed level of consciousness [None]
